FAERS Safety Report 15266745 (Version 1)
Quarter: 2018Q3

REPORT INFORMATION
  Report Type: Spontaneous
  Country: US (occurrence: US)
  Receive Date: 20180724
  Receipt Date: 20180724
  Transmission Date: 20181010
  Serious: Yes (Disabling)
  Sender: FDA-Public Use
  Company Number: None

PATIENT
  Age: 90 Year
  Sex: Female
  Weight: 61.23 kg

DRUGS (6)
  1. GLIMEPIRIDE. [Concomitant]
     Active Substance: GLIMEPIRIDE
  2. MAGNESIUM [Concomitant]
     Active Substance: MAGNESIUM
  3. LEVOFLOXACIN 750MG [Suspect]
     Active Substance: LEVOFLOXACIN
     Indication: PRODUCT USED FOR UNKNOWN INDICATION
     Route: 048
     Dates: start: 20180527, end: 20180529
  4. INDAPAMIDE. [Concomitant]
     Active Substance: INDAPAMIDE
  5. LOSARTAN POTASSIUM. [Concomitant]
     Active Substance: LOSARTAN POTASSIUM
  6. ECOTRIN [Concomitant]
     Active Substance: ASPIRIN

REACTIONS (7)
  - Disturbance in attention [None]
  - Gait disturbance [None]
  - Muscle spasms [None]
  - Aphonia [None]
  - Pulmonary congestion [None]
  - Dizziness [None]
  - Decreased appetite [None]

NARRATIVE: CASE EVENT DATE: 20180527
